FAERS Safety Report 18688049 (Version 1)
Quarter: 2020Q4

REPORT INFORMATION
  Report Type: Spontaneous
  Country: FR (occurrence: FR)
  Receive Date: 20201231
  Receipt Date: 20201231
  Transmission Date: 20210114
  Serious: Yes (Death, Other)
  Sender: FDA-Public Use
  Company Number: FR-ACCORD-212497

PATIENT
  Age: 46 Year
  Sex: Male
  Weight: 133 kg

DRUGS (2)
  1. AMITRIPTYLINE [Suspect]
     Active Substance: AMITRIPTYLINE
     Route: 048
  2. OXYCODONE [Suspect]
     Active Substance: OXYCODONE
     Route: 048

REACTIONS (3)
  - Drug use disorder [Fatal]
  - Asphyxia [Fatal]
  - Intentional overdose [Unknown]

NARRATIVE: CASE EVENT DATE: 20191024
